FAERS Safety Report 19501400 (Version 1)
Quarter: 2021Q3

REPORT INFORMATION
  Report Type: Spontaneous
  Country: US (occurrence: US)
  Receive Date: 20210707
  Receipt Date: 20210707
  Transmission Date: 20211014
  Serious: Yes (Other)
  Sender: FDA-Public Use
  Company Number: US-BAYER-2021-164624

PATIENT
  Age: 54 Year
  Sex: Female

DRUGS (1)
  1. GADAVIST [Suspect]
     Active Substance: GADOBUTROL
     Indication: MAGNETIC RESONANCE IMAGING BREAST
     Dosage: UNK UNK, ONCE

REACTIONS (2)
  - Injection site pain [None]
  - Injection site thrombosis [None]

NARRATIVE: CASE EVENT DATE: 20210623
